FAERS Safety Report 20779291 (Version 1)
Quarter: 2022Q2

REPORT INFORMATION
  Report Type: Spontaneous
  Country: US (occurrence: US)
  Receive Date: 20220503
  Receipt Date: 20220503
  Transmission Date: 20220720
  Serious: No
  Sender: FDA-Public Use
  Company Number: US-009507513-2204USA008591

PATIENT
  Age: 84 Year
  Sex: Female

DRUGS (4)
  1. DIFICID [Suspect]
     Active Substance: FIDAXOMICIN
     Indication: Clostridium difficile infection
     Dosage: UNK
     Route: 048
     Dates: start: 20220414
  2. VITAMINS NOS [Concomitant]
     Active Substance: VITAMINS
  3. DIETARY SUPPLEMENT [Concomitant]
     Active Substance: DIETARY SUPPLEMENT
     Indication: Arthritis
  4. MINERALS\VITAMINS [Concomitant]
     Active Substance: MINERALS\VITAMINS
     Dosage: 2 CAPSULES, ONCE A DAY

REACTIONS (5)
  - Diarrhoea [Not Recovered/Not Resolved]
  - Hypotension [Unknown]
  - Abdominal pain upper [Not Recovered/Not Resolved]
  - Abdominal distension [Not Recovered/Not Resolved]
  - Flatulence [Not Recovered/Not Resolved]

NARRATIVE: CASE EVENT DATE: 20220401
